FAERS Safety Report 7076684-9 (Version None)
Quarter: 2010Q4

REPORT INFORMATION
  Report Type: 
  Country: None (occurrence: None)
  Receive Date: 20101029
  Receipt Date: 20101025
  Transmission Date: 20110411
  Serious: Yes (Hospitalization)
  Sender: FDA-Public Use
  Company Number: DL2010-0845

PATIENT
  Age: 17 Year
  Sex: Female

DRUGS (4)
  1. MIFEPRISTONE (MIFEPREX) [Suspect]
     Indication: ABORTION INDUCED
     Dosage: 200 MG, ORAL
     Route: 048
     Dates: start: 20100726
  2. MISOPROSTOL [Suspect]
     Dosage: 800 MG, BUCCAL
     Route: 002
     Dates: start: 20100727
  3. MISOPROSTOL [Suspect]
     Dosage: 800 MG, BUCCAL
     Route: 002
     Dates: start: 20100803
  4. DOXYCYCLINE [Concomitant]

REACTIONS (5)
  - ABORTION INCOMPLETE [None]
  - ANAEMIA [None]
  - HAEMORRHAGE [None]
  - MUSCLE SPASMS [None]
  - SEPSIS [None]
